FAERS Safety Report 6283533 (Version 2)
Quarter: 2012Q4

REPORT INFORMATION
  Report Type: 
  Country: CA (occurrence: CA)
  Receive Date: 20070409
  Receipt Date: 20120918
  Transmission Date: 20130627
  Serious: Yes (Other)
  Sender: FDA-Public Use
  Company Number: PHMT2007CA00920

PATIENT
  Age: 59 None
  Sex: Female

DRUGS (1)
  1. CLOZARIL [Suspect]
     Indication: SCHIZOAFFECTIVE DISORDER
     Dosage: 125 mg, q AM and 100 mg qHs
     Route: 048
     Dates: start: 20061005

REACTIONS (2)
  - Uterine cancer [Recovering/Resolving]
  - White blood cell count decreased [Recovering/Resolving]
